FAERS Safety Report 17477728 (Version 2)
Quarter: 2020Q1

REPORT INFORMATION
  Report Type: Report from Study
  Country: None (occurrence: CO)
  Receive Date: 20200228
  Receipt Date: 20200303
  Transmission Date: 20200409
  Serious: Yes (Hospitalization)
  Sender: FDA-Public Use
  Company Number: CO-ABBVIE-20K-036-3260347-00

PATIENT
  Age: 66 Year
  Sex: Female
  Weight: 75 kg

DRUGS (2)
  1. HUMIRA [Suspect]
     Active Substance: ADALIMUMAB
     Indication: ANKYLOSING SPONDYLITIS
     Route: 058
     Dates: start: 20170823
  2. HUMIRA [Suspect]
     Active Substance: ADALIMUMAB
     Indication: ANKYLOSING SPONDYLITIS
     Route: 058

REACTIONS (11)
  - Influenza [Recovered/Resolved]
  - Nephrolithiasis [Not Recovered/Not Resolved]
  - Drug ineffective [Unknown]
  - Vulval abscess [Unknown]
  - Renal pain [Not Recovered/Not Resolved]
  - Fluid retention [Unknown]
  - Hypertension [Unknown]
  - Dysuria [Not Recovered/Not Resolved]
  - Kidney infection [Recovering/Resolving]
  - Bladder pain [Recovering/Resolving]
  - Furuncle [Unknown]

NARRATIVE: CASE EVENT DATE: 201911
